FAERS Safety Report 7154542-9 (Version None)
Quarter: 2010Q4

REPORT INFORMATION
  Report Type: 
  Country: None (occurrence: None)
  Receive Date: 20101214
  Receipt Date: 20091102
  Transmission Date: 20110411
  Serious: No
  Sender: FDA-Public Use
  Company Number: US-AMGEN-KDL372647

PATIENT

DRUGS (2)
  1. ENBREL [Suspect]
     Indication: RHEUMATOID ARTHRITIS
     Dosage: 50 MG, 2 TIMES/WK
     Route: 058
     Dates: start: 20091022
  2. ENBREL [Suspect]
     Indication: PSORIASIS

REACTIONS (7)
  - BLOOD CALCIUM DECREASED [None]
  - BLOOD POTASSIUM DECREASED [None]
  - BURNING SENSATION [None]
  - LIVER FUNCTION TEST ABNORMAL [None]
  - MUSCULOSKELETAL DISCOMFORT [None]
  - PAIN [None]
  - PAIN IN EXTREMITY [None]
